FAERS Safety Report 24345869 (Version 1)
Quarter: 2024Q3

REPORT INFORMATION
  Report Type: Report from Study
  Country: AU (occurrence: AU)
  Receive Date: 20240920
  Receipt Date: 20240920
  Transmission Date: 20241016
  Serious: Yes (Death, Other)
  Sender: ABBVIE
  Company Number: AU-JNJFOC-20230644745

PATIENT

DRUGS (6)
  1. IMBRUVICA [Suspect]
     Active Substance: IBRUTINIB
     Indication: Diffuse large B-cell lymphoma
     Route: 048
  2. VINCRISTINE SULFATE [Suspect]
     Active Substance: VINCRISTINE SULFATE
     Indication: Diffuse large B-cell lymphoma
     Route: 065
  3. DOXORUBICIN HYDROCHLORIDE [Suspect]
     Active Substance: DOXORUBICIN HYDROCHLORIDE
     Indication: Diffuse large B-cell lymphoma
     Route: 065
  4. RITUXIMAB [Suspect]
     Active Substance: RITUXIMAB
     Indication: Diffuse large B-cell lymphoma
     Route: 065
  5. PREDNISONE [Suspect]
     Active Substance: PREDNISONE
     Indication: Diffuse large B-cell lymphoma
     Route: 065
  6. CYCLOPHOSPHAMIDE [Suspect]
     Active Substance: CYCLOPHOSPHAMIDE
     Indication: Diffuse large B-cell lymphoma
     Route: 065

REACTIONS (30)
  - Infection [Unknown]
  - Diarrhoea [Unknown]
  - Off label use [Unknown]
  - Neutropenia [Unknown]
  - Haemorrhage [Unknown]
  - Haematoma [Unknown]
  - Upper gastrointestinal haemorrhage [Fatal]
  - Skin disorder [Unknown]
  - Toxicity to various agents [Fatal]
  - Pneumonia [Fatal]
  - Febrile neutropenia [Unknown]
  - Oedema peripheral [Unknown]
  - Respiratory failure [Fatal]
  - Thrombocytopenia [Unknown]
  - Constipation [Unknown]
  - Atrial flutter [Unknown]
  - Pyrexia [Unknown]
  - Cardiac arrest [Fatal]
  - Hypotension [Unknown]
  - Peripheral sensory neuropathy [Unknown]
  - Fatigue [Unknown]
  - Insomnia [Unknown]
  - Contusion [Unknown]
  - Arthralgia [Unknown]
  - Anaemia [Unknown]
  - Nausea [Unknown]
  - Hypertension [Unknown]
  - Hypokalaemia [Unknown]
  - Fall [Unknown]
  - Atrial fibrillation [Unknown]
